FAERS Safety Report 4323399-3 (Version None)
Quarter: 2004Q1

REPORT INFORMATION
  Report Type: 
  Country: None (occurrence: None)
  Receive Date: 20040325
  Receipt Date: 20040223
  Transmission Date: 20041129
  Serious: Yes (Hospitalization)
  Sender: FDA-Public Use
  Company Number: JP-GLAXOSMITHKLINE-B0324520A

PATIENT
  Age: 69 Year
  Sex: Female
  Weight: 49.8 kg

DRUGS (11)
  1. VALTREX [Suspect]
     Indication: HERPES ZOSTER
     Dosage: 500MG TWICE PER DAY
     Route: 048
     Dates: start: 20040221, end: 20040223
  2. CALCITRIOL [Concomitant]
     Indication: RENAL FAILURE CHRONIC
     Dosage: .25MCG PER DAY
     Route: 048
  3. CALCIUM CARBONATE [Concomitant]
     Indication: RENAL FAILURE CHRONIC
     Dosage: 3G PER DAY
     Route: 048
  4. ESTAZOLAM [Concomitant]
     Dosage: 2MG PER DAY
     Route: 048
  5. LEVOTHYROXINE SODIUM [Concomitant]
     Dosage: 100MCG PER DAY
     Route: 048
  6. ATENOLOL [Concomitant]
     Dosage: 50MG PER DAY
     Route: 048
  7. TRANDOLAPRIL [Concomitant]
     Dosage: 1MG PER DAY
     Route: 048
  8. GUANABENZ ACETATE [Concomitant]
     Dosage: 4MG PER DAY
     Route: 048
  9. SENNOSIDE [Concomitant]
     Dosage: .5G PER DAY
     Route: 048
  10. ACEMETACIN [Concomitant]
     Indication: PAIN
     Dosage: 60MG PER DAY
     Route: 048
     Dates: start: 20040221, end: 20040222
  11. HAEMODIALYSIS [Concomitant]
     Dates: start: 20040220

REACTIONS (6)
  - ABASIA [None]
  - DEPRESSED LEVEL OF CONSCIOUSNESS [None]
  - DIZZINESS [None]
  - DYSARTHRIA [None]
  - DYSSTASIA [None]
  - FEELING ABNORMAL [None]
